FAERS Safety Report 7053287-3 (Version None)
Quarter: 2010Q4

REPORT INFORMATION
  Report Type: 
  Country: None (occurrence: None)
  Receive Date: 20101014
  Receipt Date: 20101005
  Transmission Date: 20110411
  Serious: Yes (Hospitalization, Other)
  Sender: FDA-Public Use
  Company Number: 2010SP026853

PATIENT
  Age: 48 Year
  Sex: Female

DRUGS (4)
  1. CHLORPHENIRAMINE MALEATE [Suspect]
     Indication: BRONCHITIS
     Dosage: PO
     Route: 048
  2. BETAMETHASONE [Suspect]
     Indication: BRONCHITIS
     Dosage: PO
     Route: 048
  3. CLINDAMYCIN [Suspect]
     Indication: RESPIRATORY DISORDER
     Dosage: PO
     Route: 048
  4. ACETAMINOPHEN [Suspect]
     Indication: RESPIRATORY DISORDER

REACTIONS (7)
  - BLOOD PRESSURE INCREASED [None]
  - BLOOD SODIUM DECREASED [None]
  - CHOLESTASIS [None]
  - GENERAL PHYSICAL HEALTH DETERIORATION [None]
  - HEADACHE [None]
  - HEPATITIS [None]
  - STEVENS-JOHNSON SYNDROME [None]
